FAERS Safety Report 4592685-4 (Version None)
Quarter: 2005Q1

REPORT INFORMATION
  Report Type: 
  Country: None (occurrence: None)
  Receive Date: 20050228
  Receipt Date: 20050217
  Transmission Date: 20050727
  Serious: Yes (Other)
  Sender: FDA-Public Use
  Company Number: PHEH2005US02179

PATIENT
  Age: 48 Year
  Sex: Female

DRUGS (3)
  1. LOTREL [Suspect]
     Indication: HYPERTENSION
     Dates: start: 20041001, end: 20050101
  2. CRESTOR [Concomitant]
     Dates: start: 20041001, end: 20041101
  3. MS CONTIN [Concomitant]
     Indication: BACK PAIN

REACTIONS (11)
  - ALLERGY TO ARTHROPOD BITE [None]
  - ANAPHYLACTIC REACTION [None]
  - ARTHRALGIA [None]
  - DYSKINESIA [None]
  - FLUID RETENTION [None]
  - FLUSHING [None]
  - HOUSE DUST ALLERGY [None]
  - JOINT SWELLING [None]
  - MYCOTIC ALLERGY [None]
  - SWELLING FACE [None]
  - TREMOR [None]
